FAERS Safety Report 13129032 (Version 1)
Quarter: 2017Q1

REPORT INFORMATION
  Report Type: Spontaneous
  Country: DE (occurrence: DE)
  Receive Date: 20170119
  Receipt Date: 20170119
  Transmission Date: 20170428
  Serious: Yes (Hospitalization)
  Sender: FDA-Public Use
  Company Number: DE-ROCHE-1880899

PATIENT
  Sex: Male

DRUGS (2)
  1. DIAZEPAM. [Suspect]
     Active Substance: DIAZEPAM
     Indication: PRODUCT USED FOR UNKNOWN INDICATION
     Dosage: 5-10 MG
     Route: 065
  2. LORAZEPAM. [Suspect]
     Active Substance: LORAZEPAM
     Indication: PRODUCT USED FOR UNKNOWN INDICATION
     Dosage: 5-10 MG
     Route: 065

REACTIONS (9)
  - Rhabdomyolysis [Unknown]
  - Sleep disorder [Unknown]
  - Arthralgia [Unknown]
  - Myalgia [Unknown]
  - Renal failure [Unknown]
  - Drug dependence [Unknown]
  - Depression [Unknown]
  - Gait disturbance [Unknown]
  - Bone pain [Unknown]

NARRATIVE: CASE EVENT DATE: 2014
